FAERS Safety Report 4853890-2 (Version None)
Quarter: 2005Q4

REPORT INFORMATION
  Report Type: 
  Country: None (occurrence: None)
  Receive Date: 20051213
  Receipt Date: 20051127
  Transmission Date: 20060501
  Serious: Yes (Hospitalization)
  Sender: FDA-Public Use
  Company Number: US200511003102

PATIENT
  Age: 15 Year
  Sex: Male

DRUGS (5)
  1. PROZAC [Suspect]
     Indication: ABNORMAL BEHAVIOUR
     Dosage: 20 MG, DAILY (1/D),
     Dates: start: 20000101
  2. LAMICTAL [Concomitant]
  3. ABILIFY [Concomitant]
  4. CLONIDINE [Concomitant]
  5. TRILEPTAL [Concomitant]

REACTIONS (2)
  - BLOOD SODIUM DECREASED [None]
  - PNEUMONIA [None]
